FAERS Safety Report 8607396-5 (Version None)
Quarter: 2012Q3

REPORT INFORMATION
  Report Type: 
  Country: None (occurrence: None)
  Receive Date: 20120808
  Receipt Date: 20120727
  Transmission Date: 20120928
  Serious: Yes (Life-Threatening, Hospitalization)
  Sender: FDA-Public Use
  Company Number: 7124170

PATIENT
  Age: 59 Year
  Sex: Female

DRUGS (2)
  1. LEVOTHYROXINE SODIUM [Suspect]
     Indication: HYPOTHYROIDISM
     Dosage: 50 MG (50 MG, 1-0-0) ORAL
     Route: 048
  2. VOLTAREN [Suspect]
     Dosage: 150 MG (75 MG, 1-0-1) ORAL
     Route: 048
     Dates: start: 20111029

REACTIONS (4)
  - SYNCOPE [None]
  - PRURITUS [None]
  - LOSS OF CONSCIOUSNESS [None]
  - RASH GENERALISED [None]
